FAERS Safety Report 8870004 (Version 1)
Quarter: 2012Q4

REPORT INFORMATION
  Report Type: 
  Country: US (occurrence: US)
  Receive Date: 20121028
  Receipt Date: 20121028
  Transmission Date: 20130627
  Serious: No
  Sender: FDA-Public Use
  Company Number: US-009507513-1210USA009219

PATIENT
  Age: 57 Year
  Sex: Female

DRUGS (6)
  1. PEGINTRON [Suspect]
     Dosage: 0.4 ml, qw
     Route: 058
  2. RIBAPAK [Suspect]
     Dosage: 1000 per day
  3. TELAPREVIR [Suspect]
  4. VITAMINS (UNSPECIFIED) [Concomitant]
  5. LOMOTIL [Concomitant]
  6. LISINOPRIL [Concomitant]

REACTIONS (1)
  - Injection site pain [Unknown]
